FAERS Safety Report 5956861-8 (Version None)
Quarter: 2008Q4

REPORT INFORMATION
  Report Type: 
  Country: None (occurrence: None)
  Receive Date: 20081114
  Receipt Date: 20081114
  Transmission Date: 20090506
  Serious: Yes (Other)
  Sender: FDA-Public Use
  Company Number: None

PATIENT
  Age: 16 Year
  Sex: Female
  Weight: 57.1532 kg

DRUGS (1)
  1. ENBREL [Suspect]
     Indication: ARTHRITIS
     Dosage: ONE PREFILLED AUTOINJECTORS WEEKLY SQ (DURATION: 2 SHOTS)
     Route: 058
     Dates: start: 20080923, end: 20081014

REACTIONS (4)
  - HYPOPHAGIA [None]
  - SKIN EXFOLIATION [None]
  - SKIN SWELLING [None]
  - VIRAL INFECTION [None]
